FAERS Safety Report 13076018 (Version 1)
Quarter: 2016Q4

REPORT INFORMATION
  Report Type: Spontaneous
  Country: US (occurrence: US)
  Receive Date: 20161230
  Receipt Date: 20161230
  Transmission Date: 20170207
  Serious: No
  Sender: FDA-Public Use
  Company Number: US-GE HEALTHCARE MEDICAL DIAGNOSTICS-OMPQ-PR-1611S-2010

PATIENT
  Age: 56 Year
  Sex: Male
  Weight: 79 kg

DRUGS (11)
  1. OMNIPAQUE [Suspect]
     Active Substance: IOHEXOL
     Indication: HEPATIC CANCER
     Dosage: DOSE NOT REPORTED
     Route: 013
     Dates: start: 20161020, end: 20161020
  2. OMNIPAQUE [Suspect]
     Active Substance: IOHEXOL
     Indication: THERAPEUTIC PROCEDURE
     Dosage: DOSE NOT REPORTED
     Route: 013
     Dates: start: 20160822, end: 20160822
  3. BENADRYL [Concomitant]
     Active Substance: DIPHENHYDRAMINE HYDROCHLORIDE
  4. VANCOMYCIN [Concomitant]
     Active Substance: VANCOMYCIN
  5. MIDAZOLAM [Concomitant]
     Active Substance: MIDAZOLAM\MIDAZOLAM HYDROCHLORIDE
  6. MAGNESIUM SULFATE. [Concomitant]
     Active Substance: MAGNESIUM SULFATE
  7. CHEMOTHERAPY OCTREOTIDE [Concomitant]
     Dates: start: 20161021, end: 20161021
  8. PREDNISONE. [Concomitant]
     Active Substance: PREDNISONE
  9. METRONIDAZOLE. [Concomitant]
     Active Substance: METRONIDAZOLE
  10. METHYLPREDNISOLONE. [Concomitant]
     Active Substance: METHYLPREDNISOLONE
  11. PROMETHAZINE [Concomitant]
     Active Substance: PROMETHAZINE\PROMETHAZINE HYDROCHLORIDE

REACTIONS (1)
  - Fixed drug eruption [Recovered/Resolved]

NARRATIVE: CASE EVENT DATE: 20161021
